FAERS Safety Report 11419714 (Version 1)
Quarter: 2015Q3

REPORT INFORMATION
  Report Type: Report from Study
  Country: GB (occurrence: GB)
  Receive Date: 20150826
  Receipt Date: 20150826
  Transmission Date: 20151125
  Serious: No
  Sender: FDA-Public Use
  Company Number: GB-UNITED THERAPEUTICS-P01-530

PATIENT
  Age: 73 Year
  Sex: Male
  Weight: 62 kg

DRUGS (11)
  1. FRUSEMIDE [Concomitant]
     Active Substance: FUROSEMIDE
     Dosage: 80 MG
     Route: 042
     Dates: start: 20000629, end: 20000704
  2. BUMETANIDE. [Concomitant]
     Active Substance: BUMETANIDE
     Route: 048
     Dates: start: 20000628, end: 20000628
  3. TREPROSTINIL SODIUM (SQ/IV) [Suspect]
     Active Substance: TREPROSTINIL SODIUM
     Indication: PULMONARY HYPERTENSION
     Dosage: 15 NG/KG/MIN
     Route: 058
     Dates: start: 20000301
  4. FRUSEMIDE [Concomitant]
     Active Substance: FUROSEMIDE
     Route: 048
     Dates: end: 20000628
  5. OXYGEN. [Concomitant]
     Active Substance: OXYGEN
  6. DIPYRIDAMOLE. [Concomitant]
     Active Substance: DIPYRIDAMOLE
     Route: 048
     Dates: end: 20001101
  7. DILTIAZEM [Concomitant]
     Active Substance: DILTIAZEM
     Route: 048
     Dates: end: 20000921
  8. BUMETANIDE. [Concomitant]
     Active Substance: BUMETANIDE
     Route: 048
     Dates: start: 20001101
  9. WARFARIN [Concomitant]
     Active Substance: WARFARIN
     Route: 048
  10. BUMETANIDE. [Concomitant]
     Active Substance: BUMETANIDE
     Route: 048
     Dates: start: 20000705, end: 20001101
  11. BUMETANIDE. [Concomitant]
     Active Substance: BUMETANIDE
     Route: 048
     Dates: start: 20000629, end: 20000630

REACTIONS (1)
  - Eczema [Recovered/Resolved]

NARRATIVE: CASE EVENT DATE: 20000802
